FAERS Safety Report 4322329-8 (Version None)
Quarter: 2004Q1

REPORT INFORMATION
  Report Type: 
  Country: None (occurrence: None)
  Receive Date: 20040319
  Receipt Date: 20040308
  Transmission Date: 20041129
  Serious: Yes (Death, Hospitalization)
  Sender: FDA-Public Use
  Company Number: CA-JNJFOC-20031006608

PATIENT
  Age: 74 Year
  Sex: Female
  Weight: 68.5 kg

DRUGS (13)
  1. REMICADE [Suspect]
     Indication: RHEUMATOID ARTHRITIS
     Dosage: SEE IMAGE
     Route: 042
     Dates: end: 20030818
  2. REMICADE [Suspect]
     Indication: RHEUMATOID ARTHRITIS
     Dosage: SEE IMAGE
     Route: 042
     Dates: start: 20010101
  3. METHOTREXATE SODIUM [Concomitant]
  4. FOLIC ACID [Concomitant]
  5. EVISTA [Concomitant]
  6. FOSAMAX [Concomitant]
  7. IMIPRAMINE (IMIPRAIMINE) [Concomitant]
  8. GOLD (GOLD) [Concomitant]
  9. PLAQUENIL [Concomitant]
  10. IMURAN [Concomitant]
  11. PREDNISONE [Concomitant]
  12. TYLENOL # 3 (ACETAMINOPHEN/CODEINE) TABLETS [Concomitant]
  13. FLEXERIL [Concomitant]

REACTIONS (13)
  - CARCINOMA [None]
  - CHEST PAIN [None]
  - CHILLS [None]
  - COUGH [None]
  - DYSPNOEA [None]
  - EMPYEMA [None]
  - INFECTION [None]
  - NEOPLASM [None]
  - PLEURAL EFFUSION [None]
  - PLEURAL FIBROSIS [None]
  - PULMONARY HYPERTENSION [None]
  - PYREXIA [None]
  - VENTRICULAR FAILURE [None]
